FAERS Safety Report 5261251-X (Version None)
Quarter: 2007Q1

REPORT INFORMATION
  Report Type: 
  Country: None (occurrence: None)
  Receive Date: 20070309
  Receipt Date: 20070306
  Transmission Date: 20070707
  Serious: Yes (Other)
  Sender: FDA-Public Use
  Company Number: US-MERCK-0511USA03979

PATIENT
  Sex: Female

DRUGS (5)
  1. FOSAMAX [Suspect]
     Route: 048
     Dates: start: 19970101, end: 20040101
  2. TAMOXIFEN CITRATE [Concomitant]
     Route: 065
     Dates: start: 20010301, end: 20060601
  3. VITAMINS (UNSPECIFIED) [Concomitant]
     Route: 065
  4. CALCIUM (UNSPECIFIED) [Concomitant]
     Route: 065
  5. VITAMIN E [Concomitant]
     Route: 065

REACTIONS (3)
  - BREAST CANCER [None]
  - GINGIVAL INJURY [None]
  - OSTEONECROSIS [None]
